FAERS Safety Report 24752265 (Version 3)
Quarter: 2025Q1

REPORT INFORMATION
  Report Type: Spontaneous
  Country: JP (occurrence: JP)
  Receive Date: 20241219
  Receipt Date: 20250122
  Transmission Date: 20250408
  Serious: Yes (Death, Other)
  Sender: ALEXION PHARMACEUTICALS
  Company Number: JP-ASTRAZENECA-240142057_064320_P_1

PATIENT
  Age: 84 Year

DRUGS (5)
  1. ANDEXXA [Suspect]
     Active Substance: ANDEXANET ALFA
     Indication: Extradural haematoma
  2. ANDEXXA [Suspect]
     Active Substance: ANDEXANET ALFA
  3. ANDEXXA [Suspect]
     Active Substance: ANDEXANET ALFA
  4. EDOXABAN [Concomitant]
     Active Substance: EDOXABAN
  5. EDOXABAN [Concomitant]
     Active Substance: EDOXABAN

REACTIONS (3)
  - Haemorrhage [Fatal]
  - Epilepsy [Fatal]
  - Streptococcal bacteraemia [Fatal]
